FAERS Safety Report 7928147-3 (Version None)
Quarter: 2011Q4

REPORT INFORMATION
  Report Type: 
  Country: None (occurrence: None)
  Receive Date: 20111118
  Receipt Date: 20111108
  Transmission Date: 20120403
  Serious: Yes (Other)
  Sender: FDA-Public Use
  Company Number: GB-BRACCO-000449

PATIENT
  Sex: Male

DRUGS (2)
  1. GASTROGRAFIN [Suspect]
     Indication: SCAN WITH CONTRAST
     Route: 054
  2. LUNG SURFACTANTS [Concomitant]
     Dosage: UNTIL DAY 63

REACTIONS (2)
  - HYPOTHYROIDISM [None]
  - BLOOD THYROID STIMULATING HORMONE INCREASED [None]
